FAERS Safety Report 23600646 (Version 1)
Quarter: 2024Q1

REPORT INFORMATION
  Report Type: Report from Study
  Country: IT (occurrence: IT)
  Receive Date: 20240306
  Receipt Date: 20240306
  Transmission Date: 20240410
  Serious: Yes (Other)
  Sender: FDA-Public Use
  Company Number: None

PATIENT
  Age: 64 Year
  Sex: Female

DRUGS (4)
  1. PACLITAXEL [Suspect]
     Active Substance: PACLITAXEL
     Indication: Breast cancer
     Dosage: UNK UNK, QW
     Route: 042
     Dates: start: 20231121
  2. PACLITAXEL [Suspect]
     Active Substance: PACLITAXEL
     Dosage: 120 MILLIGRAM
     Route: 042
     Dates: start: 20231212, end: 20231212
  3. TRASTUZUMAB [Suspect]
     Active Substance: TRASTUZUMAB
     Indication: Breast cancer
     Dosage: UNK UNK, QW
     Route: 042
     Dates: start: 20231121
  4. TRASTUZUMAB [Suspect]
     Active Substance: TRASTUZUMAB
     Dosage: 95 MILLIGRAM
     Route: 042
     Dates: start: 20231212, end: 20231212

REACTIONS (2)
  - Leukopenia [Recovering/Resolving]
  - Off label use [Recovering/Resolving]

NARRATIVE: CASE EVENT DATE: 20231212
